FAERS Safety Report 14949046 (Version 3)
Quarter: 2018Q2

REPORT INFORMATION
  Report Type: Spontaneous
  Country: ES (occurrence: ES)
  Receive Date: 20180529
  Receipt Date: 20180619
  Transmission Date: 20180711
  Serious: Yes (Life-Threatening, Hospitalization, Other)
  Sender: FDA-Public Use
  Company Number: ES-PFIZER INC-2018215281

PATIENT
  Age: 76 Year
  Sex: Female
  Weight: 51 kg

DRUGS (9)
  1. DILIBAN [Interacting]
     Active Substance: ACETAMINOPHEN\TRAMADOL HYDROCHLORIDE
     Indication: ANALGESIC THERAPY
  2. PANTOPRAZOLE [Suspect]
     Active Substance: PANTOPRAZOLE
     Dosage: 20 MG, QD (1 DF, ONCE DAILY)
     Route: 048
     Dates: start: 20180406
  3. DILIBAN [Interacting]
     Active Substance: ACETAMINOPHEN\TRAMADOL HYDROCHLORIDE
     Indication: PAIN
     Dosage: 650/75 MG, TID (1-1-1)
     Route: 048
     Dates: start: 20180411
  4. ARAVA [Concomitant]
     Active Substance: LEFLUNOMIDE
     Dosage: 10 MG, QD (1 DF, QD)
     Route: 048
     Dates: start: 20160720
  5. SINTROM [Concomitant]
     Active Substance: ACENOCOUMAROL
     Dosage: 1 DF, 1X/DAY
     Route: 048
     Dates: start: 20180125
  6. CO-DIOVAN [Interacting]
     Active Substance: HYDROCHLOROTHIAZIDE\VALSARTAN
     Dosage: 160/12.5 MG, DAILY (QD)
     Route: 048
     Dates: start: 20130704
  7. MASTICAL D UNIDIA [Concomitant]
     Dosage: 1 DF, 1X/DAY
     Route: 048
     Dates: start: 20140526
  8. CELEBREX [Interacting]
     Active Substance: CELECOXIB
     Dosage: 200 MG, BID (I DF, BID)
     Route: 048
     Dates: start: 20180406, end: 20180411
  9. PROLIA [Concomitant]
     Active Substance: DENOSUMAB
     Dosage: 60 MG, BID (1DF, BID)
     Dates: start: 20141222

REACTIONS (4)
  - Drug interaction [Unknown]
  - Hyponatraemia [Recovered/Resolved]
  - Depressed level of consciousness [Recovered/Resolved]
  - Generalised tonic-clonic seizure [Recovered/Resolved]

NARRATIVE: CASE EVENT DATE: 20180414
